FAERS Safety Report 14616963 (Version 2)
Quarter: 2018Q2

REPORT INFORMATION
  Report Type: Report from Study
  Country: CO (occurrence: CO)
  Receive Date: 20180309
  Receipt Date: 20180405
  Transmission Date: 20180711
  Serious: Yes (Other)
  Sender: FDA-Public Use
  Company Number: PHHY2018CO036991

PATIENT
  Sex: Female
  Weight: 70 kg

DRUGS (2)
  1. LUCENTIS [Suspect]
     Active Substance: RANIBIZUMAB
     Indication: MACULAR OEDEMA
     Dosage: 0.5 MG, QMO
     Route: 047
     Dates: start: 20171206
  2. LOSARTAN. [Suspect]
     Active Substance: LOSARTAN
     Indication: HYPERTENSION
     Dosage: 50 MG, QD
     Route: 048
     Dates: start: 20171206

REACTIONS (4)
  - Retinal detachment [Recovering/Resolving]
  - Eye haemorrhage [Unknown]
  - Visual impairment [Recovering/Resolving]
  - Retinal disorder [Unknown]
